FAERS Safety Report 22173539 (Version 1)
Quarter: 2023Q2

REPORT INFORMATION
  Report Type: Spontaneous
  Country: CN (occurrence: CN)
  Receive Date: 20230404
  Receipt Date: 20230404
  Transmission Date: 20230722
  Serious: Yes (Other)
  Sender: FDA-Public Use
  Company Number: CN-SA-SAC20230331001286

PATIENT
  Age: 71 Year
  Sex: Female
  Weight: 48 kg

DRUGS (1)
  1. ZOLPIDEM TARTRATE [Suspect]
     Active Substance: ZOLPIDEM TARTRATE
     Indication: Sleep disorder
     Dosage: 10 MG, TOTAL
     Route: 048
     Dates: start: 20230312, end: 20230312

REACTIONS (4)
  - Delirium [Recovering/Resolving]
  - Tangentiality [Recovered/Resolved]
  - Vertigo [Recovering/Resolving]
  - Confusional state [Recovered/Resolved]

NARRATIVE: CASE EVENT DATE: 20230312
